FAERS Safety Report 10580201 (Version 2)
Quarter: 2014Q4

REPORT INFORMATION
  Report Type: Spontaneous
  Country: GB (occurrence: GB)
  Receive Date: 20141112
  Receipt Date: 20141216
  Transmission Date: 20150529
  Serious: Yes (Disabling)
  Sender: FDA-Public Use
  Company Number: GB-ALLERGAN-1423297US

PATIENT
  Age: 58 Year
  Sex: Female
  Weight: 64.86 kg

DRUGS (2)
  1. TRUSOPT [Concomitant]
     Active Substance: DORZOLAMIDE HYDROCHLORIDE
  2. GANFORT [Suspect]
     Active Substance: BIMATOPROST\TIMOLOL
     Indication: GLAUCOMA
     Dosage: 1 DROP ONCE DAILY
     Route: 047
     Dates: start: 20141016, end: 20141027

REACTIONS (1)
  - Tinnitus [Not Recovered/Not Resolved]
